FAERS Safety Report 8350850-4 (Version None)
Quarter: 2012Q2

REPORT INFORMATION
  Report Type: 
  Country: None (occurrence: None)
  Receive Date: 20120510
  Receipt Date: 20120504
  Transmission Date: 20120825
  Serious: Yes (Other)
  Sender: FDA-Public Use
  Company Number: CA-TEVA-315172USA

PATIENT
  Sex: Male

DRUGS (9)
  1. PREDNISONE TAB [Concomitant]
     Dates: start: 20090616
  2. ROSUVASTATIN [Concomitant]
     Dates: start: 20040408
  3. ABATACEPT [Suspect]
     Dosage: 125 MILLIGRAM;
     Route: 058
     Dates: start: 20080617
  4. ACETYLSALICYLIC ACID SRT [Concomitant]
     Dates: start: 20030507
  5. AMLODIPINE BESYLATE [Concomitant]
     Dates: start: 20030630
  6. METHOTREXATE [Suspect]
     Dates: start: 20101201
  7. FOLIC ACID [Concomitant]
     Dates: start: 20100610
  8. METFORMIN HCL [Concomitant]
     Dates: start: 20030507
  9. TELMISARTAN [Concomitant]
     Dates: start: 19980101

REACTIONS (1)
  - LUNG ADENOCARCINOMA METASTATIC [None]
